FAERS Safety Report 10079921 (Version 2)
Quarter: 2014Q2

REPORT INFORMATION
  Report Type: Spontaneous
  Country: US (occurrence: US)
  Receive Date: 20140415
  Receipt Date: 20140429
  Transmission Date: 20141212
  Serious: No
  Sender: FDA-Public Use
  Company Number: US-ASTRAZENECA-2014SE21949

PATIENT
  Age: 49 Year
  Sex: Male
  Weight: 120.2 kg

DRUGS (17)
  1. PULMICORT FLEXHALER [Suspect]
     Indication: ASTHMA
     Dosage: 180 MCG TWO PUFFS BID
     Route: 055
     Dates: start: 2010, end: 201403
  2. OMERAZOLE [Suspect]
     Indication: GASTROOESOPHAGEAL REFLUX DISEASE
     Route: 048
  3. KOMBIGLYZE [Concomitant]
     Indication: DIABETES MELLITUS
     Route: 048
  4. ZOLAIR INJECTION [Concomitant]
     Indication: ASTHMA
     Dosage: NR Q2WK
  5. FLONASE [Concomitant]
     Indication: HYPERSENSITIVITY
     Dosage: 50MCG QD
  6. NOVOLOG [Concomitant]
     Indication: DIABETES MELLITUS
  7. LEVEMIR [Concomitant]
     Indication: DIABETES MELLITUS
  8. POTASSIUM [Concomitant]
     Indication: ILL-DEFINED DISORDER
     Route: 048
  9. CHLORTHALIDONE [Concomitant]
     Indication: HYPERTENSION
     Dosage: 25MG
  10. ZERTEC [Concomitant]
     Indication: HYPERSENSITIVITY
     Dosage: 10MG
  11. VIIBRYD [Concomitant]
     Indication: DEPRESSION
     Dosage: 40MG
  12. MONTELUKAST [Concomitant]
     Indication: HYPERSENSITIVITY
     Dosage: 10MG
  13. TRAMADOL [Concomitant]
     Indication: MUSCULOSKELETAL PAIN
  14. IBUPROFEN [Concomitant]
     Indication: MUSCULOSKELETAL PAIN
  15. RANITIDINE [Concomitant]
     Indication: GASTROOESOPHAGEAL REFLUX DISEASE
     Dosage: 150MG
  16. ASPIRIN [Concomitant]
     Dosage: 81MG
     Route: 048
  17. MULTIVITAMIN [Concomitant]
     Dosage: NR
     Route: 048

REACTIONS (3)
  - Feeling abnormal [Not Recovered/Not Resolved]
  - Dyspnoea [Not Recovered/Not Resolved]
  - Drug dose omission [Unknown]
